FAERS Safety Report 9717716 (Version 1)
Quarter: 2013Q4

REPORT INFORMATION
  Report Type: Spontaneous
  Country: IN (occurrence: IN)
  Receive Date: 20131127
  Receipt Date: 20131127
  Transmission Date: 20140711
  Serious: Yes (Hospitalization)
  Sender: FDA-Public Use
  Company Number: IN-GE HEALTHCARE MEDICAL DIAGNOSTICS-OMPQ-PR-1311S-1357

PATIENT
  Age: 40 Year
  Sex: Female
  Weight: 60 kg

DRUGS (2)
  1. OMNIPAQUE [Suspect]
     Indication: CERVIX CARCINOMA
     Route: 042
     Dates: start: 20131111, end: 20131111
  2. OMNIPAQUE [Suspect]
     Indication: DIAGNOSTIC PROCEDURE

REACTIONS (4)
  - Erythema [Recovered/Resolved]
  - Rash [Recovered/Resolved]
  - Blood pressure decreased [Recovered/Resolved]
  - Abdominal pain [Recovered/Resolved]
